FAERS Safety Report 8511984-4 (Version None)
Quarter: 2012Q3

REPORT INFORMATION
  Report Type: 
  Country: None (occurrence: None)
  Receive Date: 20120716
  Receipt Date: 20120703
  Transmission Date: 20120928
  Serious: No
  Sender: FDA-Public Use
  Company Number: US-ASTRAZENECA-2012SE45246

PATIENT
  Age: 73 Year
  Sex: Female
  Weight: 59 kg

DRUGS (9)
  1. ARIMIDEX [Suspect]
     Route: 048
     Dates: start: 20120401
  2. LEVOTHROID [Concomitant]
     Indication: THYROID DISORDER
  3. LASIX [Concomitant]
     Indication: HYPERTENSION
  4. ACTINEL [Concomitant]
  5. ARIMIDEX [Suspect]
     Indication: BREAST CANCER
     Route: 048
  6. HYDRALAZINE HCL [Concomitant]
     Indication: HYPERTENSION
  7. POTASSIUM CHLORIDE [Concomitant]
  8. CALCIUM, VITAMIN D [Concomitant]
  9. LOVASA [Concomitant]
     Indication: BLOOD CHOLESTEROL ABNORMAL

REACTIONS (8)
  - INTENTIONAL DRUG MISUSE [None]
  - ABDOMINAL DISCOMFORT [None]
  - DYSPHAGIA [None]
  - PAIN IN EXTREMITY [None]
  - STOMATITIS [None]
  - MALAISE [None]
  - THROAT TIGHTNESS [None]
  - NAUSEA [None]
